FAERS Safety Report 17389656 (Version 1)
Quarter: 2020Q1

REPORT INFORMATION
  Report Type: Report from Study
  Country: None (occurrence: DE)
  Receive Date: 20200207
  Receipt Date: 20200207
  Transmission Date: 20200409
  Serious: Yes (Death)
  Sender: FDA-Public Use
  Company Number: DE-ABBVIE-20K-062-3265561-00

PATIENT
  Age: 54 Year
  Sex: Female

DRUGS (8)
  1. MTX [Concomitant]
     Active Substance: METHOTREXATE SODIUM
     Indication: PRODUCT USED FOR UNKNOWN INDICATION
     Dosage: THERAPY START DATE WAS BEFORE THE SEP 2016 AND THERAPY END DATE WAS AFTER THE SEP 2017
     Dates: start: 2016, end: 2017
  2. MTX [Concomitant]
     Active Substance: METHOTREXATE SODIUM
     Dosage: THERAPY START DATE WAS AFTER AUG 2018
  3. ORENCIA [Concomitant]
     Active Substance: ABATACEPT
     Dates: start: 201804, end: 201901
  4. ORENCIA [Concomitant]
     Active Substance: ABATACEPT
     Indication: PRODUCT USED FOR UNKNOWN INDICATION
     Dates: start: 201706, end: 201801
  5. OLUMIANT [Concomitant]
     Active Substance: BARICITINIB
     Indication: PRODUCT USED FOR UNKNOWN INDICATION
     Dates: start: 201902
  6. BENEPALI [Concomitant]
     Active Substance: ETANERCEPT
     Indication: PRODUCT USED FOR UNKNOWN INDICATION
     Dates: start: 201704, end: 201704
  7. HUMIRA [Suspect]
     Active Substance: ADALIMUMAB
     Indication: RHEUMATOID ARTHRITIS
     Route: 058
     Dates: start: 201609, end: 201703
  8. MTX [Concomitant]
     Active Substance: METHOTREXATE SODIUM
     Dosage: THERAPY START DATE WAS AFTER THE MAR 2017 AND THERAPY END DATE WAS BEFORE THE FEB 2019

REACTIONS (1)
  - Cerebral haemorrhage [Fatal]
